FAERS Safety Report 16873796 (Version 2)
Quarter: 2019Q4

REPORT INFORMATION
  Report Type: Report from Study
  Country: PL (occurrence: PL)
  Receive Date: 20191001
  Receipt Date: 20191002
  Transmission Date: 20200122
  Serious: Yes (Hospitalization)
  Sender: FDA-Public Use
  Company Number: PL-B.I. PHARMACEUTICALS,INC./RIDGEFIELD-2019-BI-104373

PATIENT
  Age: 45 Year
  Sex: Female

DRUGS (1)
  1. NINTEDANIB [Suspect]
     Active Substance: NINTEDANIB
     Indication: INTERSTITIAL LUNG DISEASE
     Route: 048
     Dates: start: 20190704

REACTIONS (1)
  - Postmenopausal haemorrhage [Recovered/Resolved]

NARRATIVE: CASE EVENT DATE: 20190915
